FAERS Safety Report 19099761 (Version 7)
Quarter: 2021Q4

REPORT INFORMATION
  Report Type: Spontaneous
  Country: CA (occurrence: CA)
  Receive Date: 20210407
  Receipt Date: 20211203
  Transmission Date: 20220303
  Serious: Yes (Other)
  Sender: FDA-Public Use
  Company Number: CA-AUROBINDO-AUR-APL-2014-07866

PATIENT
  Age: 19 Year
  Sex: Female

DRUGS (62)
  1. CITALOPRAM [Suspect]
     Active Substance: CITALOPRAM HYDROBROMIDE
     Indication: Complex regional pain syndrome
     Dosage: UNK
     Route: 065
  2. CELECOXIB [Suspect]
     Active Substance: CELECOXIB
     Indication: Complex regional pain syndrome
     Dosage: UNK
     Route: 065
  3. DULOXETINE [Suspect]
     Active Substance: DULOXETINE
     Indication: Complex regional pain syndrome
     Dosage: UNK
     Route: 065
  4. GABAPENTIN [Suspect]
     Active Substance: GABAPENTIN
     Indication: Complex regional pain syndrome
     Dosage: UNK
     Route: 065
  5. LIDOCAINE [Suspect]
     Active Substance: LIDOCAINE
     Indication: Complex regional pain syndrome
     Dosage: UNK
     Route: 065
  6. PREGABALIN [Suspect]
     Active Substance: PREGABALIN
     Indication: Complex regional pain syndrome
     Dosage: 150 MILLIGRAM, TWO TIMES A DAY
     Route: 065
  7. PREGABALIN [Suspect]
     Active Substance: PREGABALIN
     Dosage: 50 MILLIGRAM, TWO TIMES A DAY
     Route: 065
  8. PREGABALIN [Suspect]
     Active Substance: PREGABALIN
     Dosage: 150 MILLIGRAM, DAILY
     Route: 065
  9. PREGABALIN [Suspect]
     Active Substance: PREGABALIN
     Indication: Complex regional pain syndrome
     Dosage: 100 MILLIGRAM, ONCE A DAY
     Route: 065
  10. PREGABALIN [Suspect]
     Active Substance: PREGABALIN
     Dosage: 300 MILLIGRAM, ONCE A DAY
     Route: 065
  11. PREGABALIN [Suspect]
     Active Substance: PREGABALIN
     Dosage: 150 MILLIGRAM
     Route: 065
  12. PREGABALIN [Suspect]
     Active Substance: PREGABALIN
     Dosage: 100 MILLIGRAM
     Route: 065
  13. TOPIRAMATE [Suspect]
     Active Substance: TOPIRAMATE
     Indication: Complex regional pain syndrome
     Dosage: UNK
     Route: 065
  14. TRAMADOL HYDROCHLORIDE [Suspect]
     Active Substance: TRAMADOL HYDROCHLORIDE
     Indication: Complex regional pain syndrome
     Dosage: UNK
     Route: 065
  15. VENLAFAXINE [Suspect]
     Active Substance: VENLAFAXINE HYDROCHLORIDE
     Indication: Complex regional pain syndrome
     Dosage: UNK
     Route: 065
  16. ACETAMINOPHEN [Suspect]
     Active Substance: ACETAMINOPHEN
     Indication: Complex regional pain syndrome
     Dosage: UNK
     Route: 048
  17. ACETAMINOPHEN [Suspect]
     Active Substance: ACETAMINOPHEN
     Dosage: UNK
     Route: 062
  18. ACETAMINOPHEN [Suspect]
     Active Substance: ACETAMINOPHEN
     Dosage: UNK
     Route: 061
  19. AMITRIPTYLINE [Suspect]
     Active Substance: AMITRIPTYLINE
     Indication: Complex regional pain syndrome
     Dosage: 150 MILLIGRAM AT NIGHT
     Route: 065
  20. AMITRIPTYLINE [Suspect]
     Active Substance: AMITRIPTYLINE
     Dosage: 50 MILLIGRAM AT BED TIME
     Route: 065
  21. TRAMADOL [Suspect]
     Active Substance: TRAMADOL
     Indication: Complex regional pain syndrome
     Dosage: UNK
     Route: 065
  22. ASPIRIN [Suspect]
     Active Substance: ASPIRIN
     Indication: Complex regional pain syndrome
     Dosage: UNK
     Route: 065
  23. ASPIRIN [Suspect]
     Active Substance: ASPIRIN
     Indication: Complex regional pain syndrome
     Dosage: UNK
     Route: 065
  24. BUPROPION [Suspect]
     Active Substance: BUPROPION
     Indication: Complex regional pain syndrome
     Dosage: UNK
     Route: 065
  25. CAPSAICIN [Suspect]
     Active Substance: CAPSAICIN
     Indication: Complex regional pain syndrome
     Dosage: UNK
     Route: 065
  26. CARBAMAZEPINE [Suspect]
     Active Substance: CARBAMAZEPINE
     Indication: Complex regional pain syndrome
     Dosage: UNK
     Route: 065
  27. HERBALS [Suspect]
     Active Substance: HERBALS
     Indication: Complex regional pain syndrome
     Dosage: UNK
     Route: 065
  28. CLONIDINE [Suspect]
     Active Substance: CLONIDINE
     Indication: Complex regional pain syndrome
     Dosage: UNK
     Route: 065
  29. CODEINE [Suspect]
     Active Substance: CODEINE
     Indication: Complex regional pain syndrome
     Dosage: UNK
     Route: 065
  30. DESIPRAMINE [Suspect]
     Active Substance: DESIPRAMINE
     Indication: Complex regional pain syndrome
     Dosage: UNK
     Route: 065
  31. DEXTROMETHORPHAN HYDROBROMIDE [Suspect]
     Active Substance: DEXTROMETHORPHAN HYDROBROMIDE
     Indication: Complex regional pain syndrome
     Dosage: UNK
     Route: 065
  32. DICLOFENAC [Suspect]
     Active Substance: DICLOFENAC
     Indication: Complex regional pain syndrome
     Dosage: UNK
     Route: 065
  33. EUCALYPTUS OIL [Suspect]
     Active Substance: EUCALYPTUS OIL
     Indication: Complex regional pain syndrome
     Dosage: UNK
  34. FENTANYL [Suspect]
     Active Substance: FENTANYL
     Indication: Complex regional pain syndrome
     Dosage: 25 MICROGRAM/HOUR EVERY 3 DAYS
     Route: 062
  35. FENTANYL [Suspect]
     Active Substance: FENTANYL
     Dosage: 100 MICROGRAM/HOUR EVERY 3 DAYS
     Route: 062
  36. HYDROMORPHONE HCL [Suspect]
     Active Substance: HYDROMORPHONE HYDROCHLORIDE
     Indication: Complex regional pain syndrome
     Dosage: UNK
     Route: 065
  37. IBUPROFEN [Suspect]
     Active Substance: IBUPROFEN
     Indication: Complex regional pain syndrome
     Dosage: UNK
     Route: 065
  38. KETAMINE [Suspect]
     Active Substance: KETAMINE
     Indication: Complex regional pain syndrome
     Dosage: 25 MILLIGRAM, TWO TIMES A DAY
     Route: 048
  39. KETAMINE [Suspect]
     Active Substance: KETAMINE
     Dosage: UNK
     Route: 042
  40. KETOROLAC [Suspect]
     Active Substance: KETOROLAC TROMETHAMINE
     Indication: Complex regional pain syndrome
     Dosage: UNK
     Route: 065
  41. LAVENDER OIL [Suspect]
     Active Substance: LAVENDER OIL
     Indication: Complex regional pain syndrome
     Dosage: UNK
     Route: 065
  42. LIDOCAINE [Suspect]
     Active Substance: LIDOCAINE
     Indication: Complex regional pain syndrome
     Dosage: UNK
     Route: 065
  43. LIDOCAINE [Suspect]
     Active Substance: LIDOCAINE
     Indication: Complex regional pain syndrome
     Dosage: UNK
     Route: 065
  44. LIDOCAINE [Suspect]
     Active Substance: LIDOCAINE
     Indication: Complex regional pain syndrome
     Dosage: UNK
     Route: 065
  45. LIDOCAINE [Suspect]
     Active Substance: LIDOCAINE
     Indication: Complex regional pain syndrome
     Dosage: UNK
     Route: 065
  46. LIDOCAINE\PRILOCAINE [Suspect]
     Active Substance: LIDOCAINE\PRILOCAINE
     Indication: Complex regional pain syndrome
     Dosage: UNK
     Route: 065
  47. MEMANTINE [Suspect]
     Active Substance: MEMANTINE
     Indication: Complex regional pain syndrome
     Dosage: UNK
     Route: 065
  48. METHADONE [Suspect]
     Active Substance: METHADONE HYDROCHLORIDE
     Indication: Complex regional pain syndrome
     Dosage: UNK
     Route: 065
  49. MEXILETINE [Suspect]
     Active Substance: MEXILETINE
     Indication: Complex regional pain syndrome
     Dosage: UNK
     Route: 065
  50. MORPHINE [Suspect]
     Active Substance: MORPHINE
     Indication: Complex regional pain syndrome
     Dosage: UNK
     Route: 065
  51. NAPROXEN [Suspect]
     Active Substance: NAPROXEN
     Indication: Complex regional pain syndrome
     Dosage: UNK
     Route: 065
  52. NORTRIPTYLINE [Suspect]
     Active Substance: NORTRIPTYLINE
     Indication: Complex regional pain syndrome
     Dosage: UNK
     Route: 065
  53. OXYCODONE [Suspect]
     Active Substance: OXYCODONE
     Indication: Complex regional pain syndrome
     Dosage: 120 MILLIGRAM, TWO TIMES A DAY
     Route: 065
  54. OXYCODONE [Suspect]
     Active Substance: OXYCODONE
     Dosage: 80 MILLIGRAM, 3 TIMES A DAY
     Route: 065
  55. OXYCODONE [Suspect]
     Active Substance: OXYCODONE
     Dosage: 50 MILLIGRAM, EVERY FOUR HOUR AS NEEDED (THIS WAS USED INFREQUENTLY)
     Route: 065
  56. OXYCODONE [Suspect]
     Active Substance: OXYCODONE
     Dosage: 10 MILLIGRAM, 3 TIMES A DAY
     Route: 065
  57. OXYCODONE [Suspect]
     Active Substance: OXYCODONE
     Dosage: 60 MILLIGRAM, TWO TIMES A DAY
     Route: 065
  58. OXCARBAZEPINE [Suspect]
     Active Substance: OXCARBAZEPINE
     Indication: Complex regional pain syndrome
     Dosage: UNK
     Route: 065
  59. ROSEMARY OIL [Suspect]
     Active Substance: ROSEMARY OIL
     Indication: Complex regional pain syndrome
     Dosage: UNK
  60. HERBALS [Suspect]
     Active Substance: HERBALS
     Indication: Complex regional pain syndrome
     Dosage: UNK
     Route: 065
  61. CAPSICUM ANNUUM [Suspect]
     Active Substance: CAPSICUM
     Indication: Complex regional pain syndrome
     Dosage: UNK
     Route: 065
  62. KETAMINE [Suspect]
     Active Substance: KETAMINE
     Indication: Complex regional pain syndrome
     Dosage: UNK
     Route: 042

REACTIONS (5)
  - Withdrawal syndrome [Unknown]
  - Immune thrombocytopenia [Unknown]
  - Therapy non-responder [Unknown]
  - Weight increased [Unknown]
  - Drug ineffective for unapproved indication [Unknown]
